FAERS Safety Report 6057151-8 (Version None)
Quarter: 2009Q1

REPORT INFORMATION
  Report Type: 
  Country: None (occurrence: None)
  Receive Date: 20090129
  Receipt Date: 20071210
  Transmission Date: 20090719
  Serious: No
  Sender: FDA-Public Use
  Company Number: A0698144A

PATIENT
  Age: 59 Year
  Sex: Female

DRUGS (7)
  1. WELLBUTRIN [Suspect]
     Indication: DEPRESSION
     Route: 048
     Dates: start: 20021101, end: 20021201
  2. PREMARIN [Concomitant]
  3. PROVERA [Concomitant]
  4. SPIRONOLACTONE [Concomitant]
  5. CLIMARA [Concomitant]
  6. KLONOPIN [Concomitant]
  7. GABAPENTIN [Concomitant]

REACTIONS (2)
  - FEELING JITTERY [None]
  - NERVOUSNESS [None]
